FAERS Safety Report 7319860-X (Version None)
Quarter: 2011Q1

REPORT INFORMATION
  Report Type: 
  Country: None (occurrence: None)
  Receive Date: 20110214
  Receipt Date: 20110127
  Transmission Date: 20110831
  Serious: Yes (Hospitalization)
  Sender: FDA-Public Use
  Company Number: 2011SP004556

PATIENT
  Sex: Male

DRUGS (2)
  1. PEG-INTRON [Suspect]
  2. NIACIN [Concomitant]

REACTIONS (4)
  - MUSCULOSKELETAL PAIN [None]
  - SENSORY LOSS [None]
  - CHEST PAIN [None]
  - PAIN IN JAW [None]
